FAERS Safety Report 17079513 (Version 2)
Quarter: 2021Q4

REPORT INFORMATION
  Report Type: Spontaneous
  Country: US (occurrence: US)
  Receive Date: 20191127
  Receipt Date: 20211129
  Transmission Date: 20220303
  Serious: No
  Sender: FDA-Public Use
  Company Number: US-UCBSA-2019037678

PATIENT
  Sex: Female

DRUGS (1)
  1. VIMPAT [Suspect]
     Active Substance: LACOSAMIDE
     Indication: Product used for unknown indication
     Dosage: (TWO 100MG TABLETS IN THE MORNING AND TWO 100MG TABLET + ONE THIRD OF A 150MG, 2X/DAY (BID)

REACTIONS (4)
  - Nasopharyngitis [Unknown]
  - Feeling drunk [Unknown]
  - Intentional overdose [Unknown]
  - Intentional product misuse [Unknown]
